FAERS Safety Report 5695930-7 (Version None)
Quarter: 2008Q2

REPORT INFORMATION
  Report Type: 
  Country: None (occurrence: None)
  Receive Date: 20080407
  Receipt Date: 20080402
  Transmission Date: 20081010
  Serious: Yes (Hospitalization, Other)
  Sender: FDA-Public Use
  Company Number: US-BRISTOL-MYERS SQUIBB COMPANY-13911730

PATIENT
  Age: 70 Year
  Sex: Female
  Weight: 96 kg

DRUGS (11)
  1. CETUXIMAB [Suspect]
     Indication: NON-SMALL CELL LUNG CANCER
     Dosage: DATE OF INITIAL DOSE:17-MAY-07,DOSE-478MG
     Route: 042
     Dates: start: 20070912, end: 20070912
  2. DOCETAXEL [Suspect]
     Indication: NON-SMALL CELL LUNG CANCER
     Dosage: DATE OF INITIAL DOSE:17-MAY-07,DOSE-57MG
     Route: 042
     Dates: start: 20070912, end: 20070912
  3. GEMCITABINE [Suspect]
     Indication: NON-SMALL CELL LUNG CANCER
     Dosage: INITIAL DOSE-1910MG,START DATE:17-MAY-07
     Route: 042
     Dates: start: 20070912, end: 20070912
  4. LASIX [Concomitant]
  5. AVANDAMET [Concomitant]
     Indication: DIABETES MELLITUS
     Dosage: 2/500
  6. CLINDAMYCIN HCL [Concomitant]
     Indication: CELLULITIS
     Dosage: 2CAPS
     Dates: start: 20070912
  7. NEXIUM [Concomitant]
     Indication: GASTROOESOPHAGEAL REFLUX DISEASE
  8. TRAZODONE HCL [Concomitant]
     Indication: ANTIDEPRESSANT THERAPY
  9. ASPIRIN [Concomitant]
  10. MAGNESIUM + ZINC [Concomitant]
     Indication: BLOOD MAGNESIUM DECREASED
     Dates: start: 20070701
  11. POTASSIUM CHLORIDE [Concomitant]
     Indication: BLOOD POTASSIUM DECREASED

REACTIONS (8)
  - BLOOD GLUCOSE INCREASED [None]
  - CELLULITIS [None]
  - CHILLS [None]
  - CHRONIC OBSTRUCTIVE PULMONARY DISEASE [None]
  - PNEUMONIA [None]
  - PYREXIA [None]
  - SEPSIS [None]
  - URINARY TRACT INFECTION [None]
